FAERS Safety Report 19741497 (Version 1)
Quarter: 2021Q3

REPORT INFORMATION
  Report Type: Report from Study
  Country: US (occurrence: US)
  Receive Date: 20210825
  Receipt Date: 20210825
  Transmission Date: 20211014
  Serious: Yes (Hospitalization)
  Sender: FDA-Public Use
  Company Number: US-BEH-2021135131

PATIENT
  Age: 60 Year
  Sex: Male
  Weight: 58.05 kg

DRUGS (1)
  1. ZEMAIRA [Suspect]
     Active Substance: .ALPHA.1-PROTEINASE INHIBITOR HUMAN
     Indication: ALPHA-1 ANTITRYPSIN DEFICIENCY
     Dosage: 3402 MILLIGRAM, QW
     Route: 042
     Dates: start: 20191024

REACTIONS (1)
  - Guillain-Barre syndrome [Unknown]
